FAERS Safety Report 11491673 (Version 1)
Quarter: 2015Q3

REPORT INFORMATION
  Report Type: Report from Study
  Country: CN (occurrence: CN)
  Receive Date: 20150910
  Receipt Date: 20150910
  Transmission Date: 20151125
  Serious: Yes (Death)
  Sender: FDA-Public Use
  Company Number: CN-ASTRAZENECA-2015SE86142

PATIENT
  Age: 25304 Day
  Sex: Male
  Weight: 60 kg

DRUGS (1)
  1. IRESSA [Suspect]
     Active Substance: GEFITINIB
     Indication: NON-SMALL CELL LUNG CANCER
     Route: 048
     Dates: start: 20150804, end: 20150817

REACTIONS (1)
  - Death [Fatal]

NARRATIVE: CASE EVENT DATE: 20150817
